FAERS Safety Report 6841337-6 (Version None)
Quarter: 2010Q3

REPORT INFORMATION
  Report Type: 
  Country: None (occurrence: None)
  Receive Date: 20100714
  Receipt Date: 20070824
  Transmission Date: 20110219
  Serious: No
  Sender: FDA-Public Use
  Company Number: US-PFIZER INC-2007052600

PATIENT
  Sex: Male
  Weight: 107.5 kg

DRUGS (7)
  1. CHANTIX [Suspect]
     Indication: TOBACCO ABUSE
     Dates: start: 20070601
  2. CHANTIX [Suspect]
  3. VITAMIN B COMPLEX CAP [Concomitant]
  4. LOVAZA [Concomitant]
  5. BENICAR [Concomitant]
  6. LOTREL [Concomitant]
     Dosage: 10/20 DAILY
  7. CRESTOR [Concomitant]

REACTIONS (3)
  - AGITATION [None]
  - DIZZINESS [None]
  - FATIGUE [None]
